FAERS Safety Report 21730682 (Version 4)
Quarter: 2023Q1

REPORT INFORMATION
  Report Type: Other
  Country: US (occurrence: None)
  Receive Date: 20221215
  Receipt Date: 20230113
  Transmission Date: 20230418
  Serious: Yes (Life-Threatening, Other)
  Sender: FDA-Public Use
  Company Number: US-ROCHE-3238592

PATIENT
  Age: 92 Year
  Sex: Male

DRUGS (4)
  1. ERIVEDGE [Suspect]
     Active Substance: VISMODEGIB
     Indication: Skin cancer
     Dosage: TAKE 1 CAPSULE BY MOUTH EVERY DAY, LAST DOSE OF DRUG 12/MAY/2022
     Route: 048
     Dates: start: 20221117
  2. ERIVEDGE [Suspect]
     Active Substance: VISMODEGIB
     Indication: Basal cell carcinoma
  3. PREDNISOLONE [Concomitant]
     Active Substance: PREDNISOLONE
     Route: 048
     Dates: start: 20220512, end: 20221112
  4. PREDNISOLONE [Concomitant]
     Active Substance: PREDNISOLONE
     Route: 047
     Dates: start: 20220512, end: 20220812

REACTIONS (7)
  - Urine odour abnormal [Unknown]
  - Stevens-Johnson syndrome [Unknown]
  - Influenza [Unknown]
  - Penile ulceration [Unknown]
  - Skin ulcer haemorrhage [Unknown]
  - Hypersensitivity [Recovered/Resolved]
  - Hypersensitivity [Unknown]

NARRATIVE: CASE EVENT DATE: 20221128
